FAERS Safety Report 7248219-9 (Version None)
Quarter: 2011Q1

REPORT INFORMATION
  Report Type: 
  Country: None (occurrence: None)
  Receive Date: 20110127
  Receipt Date: 20110120
  Transmission Date: 20110831
  Serious: Yes (Hospitalization, Other)
  Sender: FDA-Public Use
  Company Number: JP-BAYER-2010-005173

PATIENT
  Sex: Female
  Weight: 51.701 kg

DRUGS (6)
  1. UNCODEABLE ^UNCLASSIFIABLE^ [Concomitant]
     Indication: BRONCHITIS
     Dosage: DAILY DOSE 6 DF
     Route: 048
     Dates: start: 20101208, end: 20101210
  2. GOREI-SAN [Concomitant]
     Indication: BRONCHITIS
     Dosage: DAILY DOSE 7.5 G
     Route: 048
     Dates: start: 20101208, end: 20101210
  3. ACETAMINOPHEN [Concomitant]
     Indication: BRONCHITIS
     Dosage: DAILY DOSE 400 MG
     Route: 048
     Dates: start: 20101208, end: 20101210
  4. CEFDINIR [Concomitant]
     Indication: BRONCHITIS
     Dosage: DAILY DOSE 300 MG
     Route: 048
     Dates: start: 20101208, end: 20101210
  5. YAZ [Suspect]
     Indication: DYSMENORRHOEA
     Dosage: DAILY DOSE 1 DF
     Route: 048
     Dates: start: 20101101, end: 20101210
  6. BIO THREE [BACTERIA NOS] [Concomitant]
     Indication: BRONCHITIS
     Dosage: DAILY DOSE 6 DF
     Route: 048
     Dates: start: 20101208, end: 20101210

REACTIONS (1)
  - NEUTROPENIA [None]
